FAERS Safety Report 16656878 (Version 1)
Quarter: 2019Q3

REPORT INFORMATION
  Report Type: Spontaneous
  Country: US (occurrence: US)
  Receive Date: 20190731
  Receipt Date: 20190731
  Transmission Date: 20191004
  Serious: Yes (Life-Threatening, Hospitalization, Disabling, Other)
  Sender: FDA-Public Use
  Company Number: None

PATIENT
  Age: 67 Year
  Sex: Male
  Weight: 83.25 kg

DRUGS (4)
  1. FLUID PILLS [Concomitant]
     Active Substance: UNSPECIFIED INGREDIENT
  2. ASPIRIN 81 MG DAILY [Concomitant]
  3. ZILRETTA [Suspect]
     Active Substance: TRIAMCINOLONE ACETONIDE
     Indication: ARTHRALGIA
     Dosage: ?          QUANTITY:1 INJECTION(S);OTHER FREQUENCY:1 INJECTION;?
     Route: 030
     Dates: start: 20190702, end: 20190702
  4. MELATONIN 5 MG AT NIGHT [Concomitant]

REACTIONS (2)
  - Inadequate aseptic technique in use of product [None]
  - Infection [None]

NARRATIVE: CASE EVENT DATE: 20190702
